FAERS Safety Report 8083464-4 (Version None)
Quarter: 2012Q1

REPORT INFORMATION
  Report Type: 
  Country: None (occurrence: None)
  Receive Date: 20120127
  Receipt Date: 20110126
  Transmission Date: 20120608
  Serious: No
  Sender: FDA-Public Use
  Company Number: US-ABBOTT-11P-163-0700761-00

PATIENT
  Sex: Female
  Weight: 68.1 kg

DRUGS (4)
  1. SIMVASTATIN [Concomitant]
     Indication: BLOOD CHOLESTEROL ABNORMAL
     Dosage: EVERY NIGHT AT BEDTIME
  2. LEVOTHYROXINE SODIUM [Concomitant]
     Indication: THYROIDECTOMY
     Dates: start: 20101101
  3. HUMIRA [Suspect]
     Indication: CROHN'S DISEASE
     Dates: start: 20101211
  4. XIFAXAN [Concomitant]
     Indication: CROHN'S DISEASE

REACTIONS (10)
  - CATARACT [None]
  - LACERATION [None]
  - VISION BLURRED [None]
  - DEVICE MALFUNCTION [None]
  - VISUAL ACUITY REDUCED TRANSIENTLY [None]
  - MIGRAINE WITH AURA [None]
  - VISUAL IMPAIRMENT [None]
  - PARAESTHESIA [None]
  - INJECTION SITE ERYTHEMA [None]
  - ARTHRITIS [None]
